FAERS Safety Report 17898584 (Version 1)
Quarter: 2020Q2

REPORT INFORMATION
  Report Type: Spontaneous
  Country: US (occurrence: US)
  Receive Date: 20200616
  Receipt Date: 20200616
  Transmission Date: 20200714
  Serious: No
  Sender: FDA-Public Use
  Company Number: US-BAUSCH-BL-2020-016015

PATIENT
  Age: 77 Year
  Sex: Male

DRUGS (2)
  1. LOTEMAX SM [Suspect]
     Active Substance: LOTEPREDNOL ETABONATE
     Indication: BLEPHAROSPASM
     Dosage: STARTED 10 DAYS AGO. 1 DROP TWICE DAILY FOR A MONTH, THEN ONCE A DAY FOR A MONTH.
     Route: 047
     Dates: start: 202005, end: 2020
  2. LOTEMAX SM [Suspect]
     Active Substance: LOTEPREDNOL ETABONATE
     Indication: PRODUCT USE IN UNAPPROVED INDICATION

REACTIONS (4)
  - Depression [Unknown]
  - Chest discomfort [Not Recovered/Not Resolved]
  - Lethargy [Unknown]
  - Product use in unapproved indication [Unknown]

NARRATIVE: CASE EVENT DATE: 2020
